FAERS Safety Report 4578501-5 (Version None)
Quarter: 2005Q1

REPORT INFORMATION
  Report Type: 
  Country: None (occurrence: None)
  Receive Date: 20050209
  Receipt Date: 20050119
  Transmission Date: 20050727
  Serious: Yes (Death, Hospitalization)
  Sender: FDA-Public Use
  Company Number: US_0502111773

PATIENT
  Sex: Male

DRUGS (13)
  1. ZYPREXA [Suspect]
     Indication: DEPRESSION
     Dosage: 20 MG DAY
     Dates: start: 20040109
  2. PAROXETINE HCL [Concomitant]
  3. ACETAMINOPHEN W/HYDROCODONE [Concomitant]
  4. OXYCODONE HCL [Concomitant]
  5. AMLODIPINE W/BENAZEPRIL [Concomitant]
  6. HYDROCODONE [Concomitant]
  7. CYCLOBENZAPRINE [Concomitant]
  8. METHYLPREDNISOLONE [Concomitant]
  9. FEXOFENADINE HYDROCHLORIDE [Concomitant]
  10. MINOCYCLINE HCL [Concomitant]
  11. GABAPENTIN [Concomitant]
  12. TOPIRAMATE [Concomitant]
  13. AMITRIPTYLINE HCL [Concomitant]

REACTIONS (17)
  - ALKALOSIS [None]
  - ANOXIC ENCEPHALOPATHY [None]
  - BLOOD CREATINE PHOSPHOKINASE MB INCREASED [None]
  - COAGULOPATHY [None]
  - DIABETES MELLITUS [None]
  - DIABETIC KETOACIDOSIS [None]
  - HYPERNATRAEMIA [None]
  - HYPERTHERMIA [None]
  - HYPOKALAEMIA [None]
  - HYPOVOLAEMIC SHOCK [None]
  - INSOMNIA [None]
  - MENTAL STATUS CHANGES [None]
  - RENAL FAILURE [None]
  - RESPIRATORY FAILURE [None]
  - RHABDOMYOLYSIS [None]
  - THINKING ABNORMAL [None]
  - TROPONIN INCREASED [None]
